FAERS Safety Report 5200337-2 (Version None)
Quarter: 2006Q4

REPORT INFORMATION
  Report Type: 
  Country: None (occurrence: None)
  Receive Date: 20061016
  Receipt Date: 20060913
  Transmission Date: 20070319
  Serious: No
  Sender: FDA-Public Use
  Company Number: 2006SP003278

PATIENT
  Age: 48 Year
  Sex: Female
  Weight: 76.2043 kg

DRUGS (14)
  1. LUNESTA [Suspect]
     Indication: INSOMNIA
     Dosage: 3 MG; HS; ORAL
     Route: 048
     Dates: start: 20060801
  2. GLUCOPHAGE [Concomitant]
  3. METOPROLOL SUCCINATE [Concomitant]
  4. IMURAN [Concomitant]
  5. SIMVASTATIN [Concomitant]
  6. HYOSCYAMINE [Concomitant]
  7. PANTOPRAZOLE SODIUM [Concomitant]
  8. HORMONES AND RELATED AGENTS [Concomitant]
  9. LEXAPRO [Concomitant]
  10. MESALAZINE [Concomitant]
  11. VITAMIN CAP [Concomitant]
  12. SKELAXIN [Concomitant]
  13. NASONEX [Concomitant]
  14. TRAMADOL HCL [Concomitant]

REACTIONS (1)
  - DYSGEUSIA [None]
